FAERS Safety Report 24120998 (Version 3)
Quarter: 2025Q4

REPORT INFORMATION
  Report Type: Spontaneous
  Country: US (occurrence: US)
  Receive Date: 20240722
  Receipt Date: 20251105
  Transmission Date: 20260118
  Serious: Yes (Other)
  Sender: PFIZER
  Company Number: US-PFIZER INC-PV202400084682

PATIENT
  Age: 62 Year
  Sex: Female

DRUGS (2)
  1. IBRANCE [Suspect]
     Active Substance: PALBOCICLIB
     Indication: Breast cancer female
     Dosage: 125 MG
     Dates: start: 20240705
  2. IBRANCE [Suspect]
     Active Substance: PALBOCICLIB
     Dosage: 100MG ORALLY DAILY FOR 21 OUT OF 28 DAYS
     Route: 048

REACTIONS (5)
  - Spinal fracture [Unknown]
  - Fatigue [Unknown]
  - Constipation [Unknown]
  - Dizziness [Unknown]
  - Alopecia [Unknown]
